FAERS Safety Report 16126418 (Version 1)
Quarter: 2019Q1

REPORT INFORMATION
  Report Type: Spontaneous
  Country: FR (occurrence: FR)
  Receive Date: 20190328
  Receipt Date: 20190328
  Transmission Date: 20190418
  Serious: Yes (Hospitalization)
  Sender: FDA-Public Use
  Company Number: FR-TEVA-2019-FR-1030044

PATIENT
  Age: 56 Year
  Sex: Male
  Weight: 71 kg

DRUGS (4)
  1. SPIRAMYCINE [Suspect]
     Active Substance: SPIRAMYCIN
     Indication: TOOTH INFECTION
     Dosage: TO AN NSAIDS
     Route: 048
     Dates: start: 20190123, end: 20190128
  2. CLAMOXYL (AMOXICILLIN) [Suspect]
     Active Substance: AMOXICILLIN
     Indication: TOOTH INFECTION
     Route: 048
     Dates: start: 20190129, end: 20190129
  3. IBUPROFENE [Suspect]
     Active Substance: IBUPROFEN
     Indication: PAIN
     Dosage: TO AN NSAIDS
     Route: 048
     Dates: start: 20190125, end: 20190128
  4. DAFALGAN [Suspect]
     Active Substance: ACETAMINOPHEN
     Indication: PAIN
     Dosage: NOT SPECIFIED
     Route: 048
     Dates: start: 20190123, end: 20190128

REACTIONS (1)
  - Acute generalised exanthematous pustulosis [Recovered/Resolved]

NARRATIVE: CASE EVENT DATE: 20190129
